FAERS Safety Report 10909577 (Version 1)
Quarter: 2015Q1

REPORT INFORMATION
  Report Type: Spontaneous
  Country: US (occurrence: US)
  Receive Date: 20150312
  Receipt Date: 20150312
  Transmission Date: 20150721
  Serious: No
  Sender: FDA-Public Use
  Company Number: US-SA-2014SA043828

PATIENT
  Age: 36 Year
  Sex: Female

DRUGS (1)
  1. NASACORT ALLERGY 24HR [Suspect]
     Active Substance: TRIAMCINOLONE ACETONIDE
     Indication: HYPERSENSITIVITY
     Dosage: DOSE- 2 SPRAYS IEN
     Route: 065
     Dates: start: 20140402, end: 20140403

REACTIONS (5)
  - Oropharyngeal pain [Not Recovered/Not Resolved]
  - Eye swelling [Not Recovered/Not Resolved]
  - Ocular hyperaemia [Not Recovered/Not Resolved]
  - Lacrimation increased [Not Recovered/Not Resolved]
  - Hypersensitivity [Not Recovered/Not Resolved]

NARRATIVE: CASE EVENT DATE: 20140403
